FAERS Safety Report 12666039 (Version 1)
Quarter: 2016Q3

REPORT INFORMATION
  Report Type: Spontaneous
  Country: US (occurrence: US)
  Receive Date: 20160818
  Receipt Date: 20160818
  Transmission Date: 20161109
  Serious: No
  Sender: FDA-Public Use
  Company Number: US-JAZZ-2016-US-005427

PATIENT
  Age: 47 Year
  Sex: Female

DRUGS (14)
  1. PROAIR HFA [Concomitant]
     Active Substance: ALBUTEROL SULFATE
  2. VYVANSE [Concomitant]
     Active Substance: LISDEXAMFETAMINE DIMESYLATE
  3. ALLEGRA ALLERGY [Concomitant]
     Active Substance: FEXOFENADINE HYDROCHLORIDE
  4. XYREM [Suspect]
     Active Substance: SODIUM OXYBATE
     Indication: NARCOLEPSY
     Dosage: 2.25 G, BID
     Route: 048
     Dates: start: 201603, end: 201603
  5. QVAR [Concomitant]
     Active Substance: BECLOMETHASONE DIPROPIONATE
  6. DULERA [Concomitant]
     Active Substance: FORMOTEROL FUMARATE DIHYDRATE\MOMETASONE FUROATE
  7. FLONASE [Concomitant]
     Active Substance: FLUTICASONE PROPIONATE
  8. VITAMIN D3 [Concomitant]
     Active Substance: CHOLECALCIFEROL
  9. VITAMIN E [Concomitant]
     Active Substance: .ALPHA.-TOCOPHEROL
  10. CALCIUM +D [Concomitant]
     Active Substance: CALCIUM\VITAMIN D
  11. MULTIVITAMINS [Concomitant]
     Active Substance: VITAMINS
  12. XYREM [Suspect]
     Active Substance: SODIUM OXYBATE
     Dosage: 3 G, BID
     Route: 048
     Dates: start: 201603
  13. LIPITOR [Concomitant]
     Active Substance: ATORVASTATIN CALCIUM
  14. DEXILANT [Concomitant]
     Active Substance: DEXLANSOPRAZOLE

REACTIONS (1)
  - Oral herpes [Not Recovered/Not Resolved]

NARRATIVE: CASE EVENT DATE: 201603
